FAERS Safety Report 4753734-3 (Version None)
Quarter: 2005Q3

REPORT INFORMATION
  Report Type: 
  Country: None (occurrence: None)
  Receive Date: 20050818
  Receipt Date: 20050804
  Transmission Date: 20060218
  Serious: Yes (Other)
  Sender: FDA-Public Use
  Company Number: 200511655BBE

PATIENT
  Sex: Male
  Weight: 90 kg

DRUGS (6)
  1. PLASBUMIN-20 [Suspect]
     Indication: PLASMA PROTEIN METABOLISM DISORDER
     Dosage: 50 ML, TOTAL DAILY, INTRAVENOUS
     Route: 042
     Dates: start: 20050703
  2. PROGRAF [Concomitant]
  3. CELLCEPT [Concomitant]
  4. PREDNISONE TAB [Concomitant]
  5. URBASON [Concomitant]
  6. VALIUM [Concomitant]

REACTIONS (4)
  - BRONCHOSPASM [None]
  - CONVULSION [None]
  - HYPERTENSION [None]
  - PYREXIA [None]
